FAERS Safety Report 24433253 (Version 2)
Quarter: 2024Q4

REPORT INFORMATION
  Report Type: Spontaneous
  Country: US (occurrence: US)
  Receive Date: 20241014
  Receipt Date: 20241028
  Transmission Date: 20250114
  Serious: Yes (Life-Threatening, Hospitalization)
  Sender: TEVA
  Company Number: US-TEVA-VS-3252940

PATIENT
  Age: 59 Year
  Sex: Male

DRUGS (9)
  1. EPINEPHRINE [Suspect]
     Active Substance: EPINEPHRINE
     Indication: Shock
     Route: 065
  2. AMLODIPINE [Suspect]
     Active Substance: AMLODIPINE BESYLATE
     Indication: Hypertension
     Route: 065
  3. INSULIN NOS [Suspect]
     Active Substance: INSULIN NOS
     Indication: Shock
     Dosage: INSULIN DRIP
     Route: 065
  4. ATROPINE [Suspect]
     Active Substance: ATROPINE
     Indication: Shock
     Dosage: TWO DOSES OF ATROPINE
     Route: 065
  5. GLUCAGON [Suspect]
     Active Substance: GLUCAGON
     Indication: Shock
     Route: 065
  6. DEXTROSE [Suspect]
     Active Substance: DEXTROSE MONOHYDRATE
     Indication: Shock
     Dosage: GLUCOSE DRIP
     Route: 065
  7. CALCIUM CHLORIDE [Suspect]
     Active Substance: CALCIUM CHLORIDE
     Indication: Shock
     Dosage: MULTIPLE AMPULES OF CALCIUM CHLORIDE
     Route: 065
  8. NOREPINEPHRINE [Suspect]
     Active Substance: NOREPINEPHRINE\NOREPINEPHRINE BITARTRATE
     Indication: Shock
     Route: 065
  9. VASOPRESSIN [Suspect]
     Active Substance: VASOPRESSIN
     Indication: Shock
     Route: 065

REACTIONS (4)
  - Sinus bradycardia [Recovering/Resolving]
  - Shock [Recovering/Resolving]
  - Accidental overdose [Unknown]
  - Drug ineffective [Unknown]
